FAERS Safety Report 6483645-7 (Version None)
Quarter: 2009Q4

REPORT INFORMATION
  Report Type: 
  Country: None (occurrence: None)
  Receive Date: 20091209
  Receipt Date: 20091127
  Transmission Date: 20100525
  Serious: Yes (Other)
  Sender: FDA-Public Use
  Company Number: PHHY2009IE34551

PATIENT
  Sex: Male

DRUGS (10)
  1. CLOZARIL [Suspect]
     Indication: SCHIZOPHRENIA
     Dosage: 450 MG, UNK
     Dates: start: 19931019
  2. CLOZARIL [Suspect]
     Dosage: 400 MG, UNK
  3. CLOZARIL [Suspect]
     Dosage: 350 MG DAILY
  4. ANAFRANIL [Concomitant]
     Indication: OBSESSIVE-COMPULSIVE DISORDER
     Dosage: 75 MG/ DAY
  5. ANAFRANIL [Concomitant]
     Dosage: 50 MG/ DAY
  6. HYOSCINE [Concomitant]
     Indication: SALIVARY HYPERSECRETION
  7. CLONAZEPAM [Concomitant]
     Dosage: 1 MG DAILY
     Route: 048
  8. FYBOGEL [Concomitant]
     Indication: CONSTIPATION
     Route: 048
  9. LACTULOSE [Concomitant]
     Indication: CONSTIPATION
     Route: 048
  10. NULYTELY [Concomitant]
     Route: 048

REACTIONS (8)
  - CONTUSION [None]
  - DEHYDRATION [None]
  - FALL [None]
  - HEART RATE INCREASED [None]
  - ORTHOSTATIC HYPOTENSION [None]
  - PALPITATIONS [None]
  - PRESYNCOPE [None]
  - SYNCOPE [None]
